FAERS Safety Report 7198016-8 (Version None)
Quarter: 2010Q4

REPORT INFORMATION
  Report Type: 
  Country: None (occurrence: None)
  Receive Date: 20101227
  Receipt Date: 20100708
  Transmission Date: 20110411
  Serious: Yes (Hospitalization, Other)
  Sender: FDA-Public Use
  Company Number: US-BAYER-201010380NA

PATIENT
  Sex: Female
  Weight: 85.909 kg

DRUGS (11)
  1. YAZ [Suspect]
     Indication: ORAL CONTRACEPTION
     Dosage: UNK
     Route: 048
     Dates: start: 20061201, end: 20070101
  2. YAZ [Suspect]
     Indication: METRORRHAGIA
  3. YAZ [Suspect]
     Indication: OVARIAN CYST
  4. YASMIN [Suspect]
     Indication: ORAL CONTRACEPTION
     Route: 048
     Dates: start: 20010101
  5. YASMIN [Suspect]
     Indication: METRORRHAGIA
  6. YASMIN [Suspect]
     Indication: OVARIAN CYST
  7. MULTIVITAMINS AND IRON [Concomitant]
  8. IRON SUPPLEMENT [Concomitant]
  9. ANTIBIOTICS [Concomitant]
     Dates: start: 20070101, end: 20090101
  10. ASCORBIC ACID [Concomitant]
  11. MOTRIN [Concomitant]
     Dates: start: 20060101, end: 20080101

REACTIONS (7)
  - CHOLECYSTECTOMY [None]
  - CHOLELITHIASIS [None]
  - CONSTIPATION [None]
  - DIARRHOEA [None]
  - FATIGUE [None]
  - FLATULENCE [None]
  - MUSCLE SPASMS [None]
